FAERS Safety Report 7374105-X (Version None)
Quarter: 2011Q1

REPORT INFORMATION
  Report Type: 
  Country: None (occurrence: None)
  Receive Date: 20110325
  Receipt Date: 20110225
  Transmission Date: 20110831
  Serious: No
  Sender: FDA-Public Use
  Company Number: US-B.I. PHARMACEUTICALS,INC./RIDGEFIELD-2011-BP-06938BP

PATIENT
  Sex: Male

DRUGS (1)
  1. PRADAXA [Suspect]
     Indication: ATRIAL FIBRILLATION
     Dosage: 300 MG
     Route: 048
     Dates: start: 20110119, end: 20110226

REACTIONS (5)
  - ABNORMAL FAECES [None]
  - HAEMATOCHEZIA [None]
  - ANORECTAL DISCOMFORT [None]
  - ABDOMINAL PAIN UPPER [None]
  - MELAENA [None]
